FAERS Safety Report 5110934-0 (Version None)
Quarter: 2006Q3

REPORT INFORMATION
  Report Type: 
  Country: None (occurrence: None)
  Receive Date: 20060922
  Receipt Date: 20060914
  Transmission Date: 20061208
  Serious: Yes (Other)
  Sender: FDA-Public Use
  Company Number: GB-JNJFOC-20060903428

PATIENT
  Age: 8 Decade
  Sex: Male

DRUGS (2)
  1. REMICADE [Suspect]
     Indication: COLITIS ULCERATIVE
     Dosage: 3RD INFUSION
     Route: 042
  2. ADCAL [Concomitant]

REACTIONS (1)
  - STEVENS-JOHNSON SYNDROME [None]
